FAERS Safety Report 9234472 (Version 2)
Quarter: 2016Q1

REPORT INFORMATION
  Report Type: Spontaneous
  Country: US (occurrence: US)
  Receive Date: 20130416
  Receipt Date: 20160211
  Transmission Date: 20160526
  Serious: Yes (Hospitalization)
  Sender: FDA-Public Use
  Company Number: US-GLAXOSMITHKLINE-A1019873A

PATIENT
  Sex: Female

DRUGS (2)
  1. FLOLAN [Suspect]
     Active Substance: EPOPROSTENOL SODIUM
     Indication: COR PULMONALE CHRONIC
     Dosage: 1.5 MG VIAL STRENGTH, UNKNOWN CONCENTRATION AT 76 ML/DAY PUMP RATE
     Dates: start: 20011117
  2. FLOLAN [Suspect]
     Active Substance: EPOPROSTENOL SODIUM
     Indication: PULMONARY ARTERIAL HYPERTENSION
     Dosage: 1.5 MG VIAL STRENGH,78 NG/KG/MIN CONCENTRATION 75,000NG/ML, PUMP RATE 76 ML/DAY, CO
     Route: 042

REACTIONS (5)
  - Headache [Unknown]
  - Dysphonia [Unknown]
  - Cough [Unknown]
  - Catheter placement [Unknown]
  - Multiple allergies [Unknown]
